FAERS Safety Report 8461754-0 (Version None)
Quarter: 2012Q2

REPORT INFORMATION
  Report Type: 
  Country: None (occurrence: None)
  Receive Date: 20120625
  Receipt Date: 20120613
  Transmission Date: 20120825
  Serious: Yes (Hospitalization, Other)
  Sender: FDA-Public Use
  Company Number: DE-JNJFOC-20120600423

PATIENT
  Sex: Female

DRUGS (4)
  1. OPIUM/NALOXONE TAB [Concomitant]
     Indication: PRODUCT USED FOR UNKNOWN INDICATION
     Route: 048
  2. PALEXIA RETARD [Suspect]
     Indication: PAIN
     Route: 048
  3. OXYCODONE HCL [Suspect]
     Indication: PAIN
     Route: 048
  4. MYCOPHENOLIC ACID [Concomitant]
     Indication: SYSTEMIC LUPUS ERYTHEMATOSUS
     Route: 048

REACTIONS (2)
  - OVERDOSE [None]
  - DRUG INEFFECTIVE [None]
